FAERS Safety Report 14465659 (Version 2)
Quarter: 2018Q3

REPORT INFORMATION
  Report Type: Spontaneous
  Country: US (occurrence: US)
  Receive Date: 20180131
  Receipt Date: 20180705
  Transmission Date: 20181010
  Serious: Yes (Hospitalization, Other)
  Sender: FDA-Public Use
  Company Number: US-BRISTOL-MYERS SQUIBB COMPANY-BMS-2018-008555

PATIENT
  Age: 52 Year
  Sex: Female

DRUGS (1)
  1. SPRYCEL [Suspect]
     Active Substance: DASATINIB
     Indication: CHRONIC MYELOID LEUKAEMIA
     Dosage: 20 MG, QD
     Route: 048
     Dates: start: 20171229

REACTIONS (8)
  - Headache [Unknown]
  - Diarrhoea [Unknown]
  - Prescribed underdose [Unknown]
  - Stomatitis [Unknown]
  - Hospitalisation [Unknown]
  - Pain [Unknown]
  - Drug ineffective [Unknown]
  - Fatigue [Unknown]

NARRATIVE: CASE EVENT DATE: 20180120
